FAERS Safety Report 9805559 (Version 5)
Quarter: 2014Q3

REPORT INFORMATION
  Report Type: Report from Study
  Country: JP (occurrence: JP)
  Receive Date: 20140109
  Receipt Date: 20140702
  Transmission Date: 20150326
  Serious: Yes (Death)
  Sender: FDA-Public Use
  Company Number: JP-ELI_LILLY_AND_COMPANY-JP201401001382

PATIENT
  Age: 34 Year
  Sex: Female
  Weight: 46 kg

DRUGS (27)
  1. LEMONAMIN [Concomitant]
     Indication: PRODUCT USED FOR UNKNOWN INDICATION
     Dosage: 18 MG, QD
     Route: 048
     Dates: start: 20130907, end: 20131029
  2. CHLORPROMAZINE HYDROCHLORIDE. [Concomitant]
     Active Substance: CHLORPROMAZINE HYDROCHLORIDE
     Indication: PRODUCT USED FOR UNKNOWN INDICATION
     Dosage: 450 MG, QD
     Route: 048
     Dates: start: 20130907, end: 20130910
  3. RISPERDAL [Concomitant]
     Active Substance: RISPERIDONE
     Dosage: 8 MG, QD
     Route: 048
     Dates: start: 20131218, end: 20131222
  4. MECOBALAMIN [Concomitant]
     Active Substance: METHYLCOBALAMIN
     Indication: RADIAL NERVE PALSY
     Dosage: 1500 UG, QD
     Route: 048
     Dates: start: 20131023, end: 20131222
  5. CHLORPROMAZINE HYDROCHLORIDE. [Concomitant]
     Active Substance: CHLORPROMAZINE HYDROCHLORIDE
     Dosage: 300 MG, QD
     Route: 048
     Dates: start: 20130911, end: 20131001
  6. MAGNESIUM OXIDE. [Concomitant]
     Active Substance: MAGNESIUM OXIDE
     Dosage: 1980 MG, QD
     Route: 048
     Dates: start: 20131009, end: 20131222
  7. LEVOMEPROMAZINE MALEATE [Concomitant]
     Active Substance: LEVOMEPROMAZINE MALEATE
     Dosage: 50 MG, QD
     Route: 048
     Dates: start: 20131016, end: 20131022
  8. VEGETAMIN [Concomitant]
     Active Substance: CHLORPROMAZINE HYDROCHLORIDE\PHENOBARBITAL\PROMETHAZINE HYDROCHLORIDE
     Indication: PRODUCT USED FOR UNKNOWN INDICATION
     Dosage: 1 DF, QD
     Route: 048
     Dates: start: 20130907, end: 20130917
  9. RISPERDAL [Concomitant]
     Active Substance: RISPERIDONE
     Dosage: 4 MG, QD
     Route: 048
     Dates: start: 20131009, end: 20131112
  10. LITIOMAL [Concomitant]
     Active Substance: LITHIUM CARBONATE
     Dosage: 600 MG, QD
     Route: 048
     Dates: start: 20130918, end: 20131217
  11. LEVOMEPROMAZINE MALEATE [Concomitant]
     Active Substance: LEVOMEPROMAZINE MALEATE
     Indication: PRODUCT USED FOR UNKNOWN INDICATION
     Dosage: 100 MG, QD
     Route: 048
  12. LEMONAMIN [Concomitant]
     Dosage: 15 MG, QD
     Route: 048
     Dates: start: 20131030, end: 20131105
  13. LEMONAMIN [Concomitant]
     Dosage: 9 MG, QD
     Route: 048
     Dates: start: 20131113, end: 20131119
  14. LITIOMAL [Concomitant]
     Active Substance: LITHIUM CARBONATE
     Dosage: 400 MG, QD
     Route: 048
     Dates: start: 20131218, end: 20131222
  15. AKIRIDEN [Concomitant]
     Active Substance: BIPERIDEN
     Indication: PARKINSONISM
     Dosage: 3 MG, QD
     Route: 048
     Dates: start: 20130907, end: 20131222
  16. FLUNITRAZEPAM [Concomitant]
     Active Substance: FLUNITRAZEPAM
     Indication: SCHIZOPHRENIA
     Dosage: 2 MG, QD
     Route: 048
  17. OLANZAPINE RAPID-ACTING IM [Suspect]
     Active Substance: OLANZAPINE
     Indication: SCHIZOPHRENIA
     Dosage: 10 MG, QD
     Route: 030
     Dates: start: 20131217, end: 20131218
  18. LEMONAMIN [Concomitant]
     Dosage: 3 MG, QD
     Route: 048
     Dates: start: 20131127, end: 20131203
  19. LEMONAMIN [Concomitant]
     Dosage: 12 MG, QD
     Route: 048
     Dates: start: 20131106, end: 20131112
  20. LEMONAMIN [Concomitant]
     Dosage: 6 MG, QD
     Route: 048
     Dates: start: 20131120, end: 20131126
  21. MAGNESIUM OXIDE. [Concomitant]
     Active Substance: MAGNESIUM OXIDE
     Indication: CONSTIPATION
     Dosage: 990 MG, QD
     Route: 048
     Dates: start: 20130907, end: 20131008
  22. FLUNITRAZEPAM [Concomitant]
     Active Substance: FLUNITRAZEPAM
     Dosage: 4 MG, QD
     Route: 048
     Dates: start: 20130918, end: 20131222
  23. RISPERDAL [Concomitant]
     Active Substance: RISPERIDONE
     Indication: SCHIZOPHRENIA
     Dosage: 2 MG, QD
     Route: 048
     Dates: start: 20131002, end: 20131008
  24. RISPERDAL [Concomitant]
     Active Substance: RISPERIDONE
     Dosage: 6 MG, QD
     Route: 048
     Dates: start: 20131113, end: 20131217
  25. CHLORPROMAZINE HYDROCHLORIDE. [Concomitant]
     Active Substance: CHLORPROMAZINE HYDROCHLORIDE
     Dosage: 150 MG, QD
     Route: 048
     Dates: start: 20131002, end: 20131008
  26. LITIOMAL [Concomitant]
     Active Substance: LITHIUM CARBONATE
     Indication: SCHIZOPHRENIA
     Dosage: 1000 MG, QD
     Route: 048
     Dates: start: 20130907, end: 20130917
  27. MOSAPRIDE CITRATE [Concomitant]
     Active Substance: MOSAPRIDE CITRATE
     Indication: DYSPEPSIA
     Dosage: 15 MG, QD
     Route: 048
     Dates: start: 20130907, end: 20131222

REACTIONS (10)
  - Dysphagia [Unknown]
  - Urinary incontinence [Unknown]
  - Lip haemorrhage [Recovered/Resolved]
  - Salivary hypersecretion [Not Recovered/Not Resolved]
  - Rhinorrhoea [Not Recovered/Not Resolved]
  - Periorbital contusion [Not Recovered/Not Resolved]
  - Sudden cardiac death [Fatal]
  - Haemorrhage subcutaneous [Unknown]
  - Epistaxis [Recovered/Resolved]
  - Ocular hyperaemia [Not Recovered/Not Resolved]

NARRATIVE: CASE EVENT DATE: 20131218
